FAERS Safety Report 6801001-6 (Version None)
Quarter: 2010Q2

REPORT INFORMATION
  Report Type: 
  Country: None (occurrence: None)
  Receive Date: 20100629
  Receipt Date: 20100621
  Transmission Date: 20101027
  Serious: Yes (Other)
  Sender: FDA-Public Use
  Company Number: CA-BAXTER-2010BH012490

PATIENT
  Age: 67 Year
  Sex: Male

DRUGS (5)
  1. GAMMAGARD LIQUID [Suspect]
     Indication: IMMUNODEFICIENCY
     Route: 042
     Dates: start: 20100429, end: 20100429
  2. GAMMAGARD LIQUID [Suspect]
     Indication: MULTIPLE MYELOMA
     Route: 042
     Dates: start: 20100429, end: 20100429
  3. GAMMAGARD LIQUID [Suspect]
     Indication: LYMPHOMA
     Route: 042
     Dates: start: 20100429, end: 20100429
  4. GAMMAGARD LIQUID [Suspect]
     Indication: SECONDARY IMMUNODEFICIENCY
     Route: 042
     Dates: start: 20100429, end: 20100429
  5. IMMUNE GLOBULIN INTRAVENOUS (HUMAN) [Concomitant]

REACTIONS (2)
  - ANAPHYLACTIC SHOCK [None]
  - HYPOTENSION [None]
